FAERS Safety Report 7262954-8 (Version None)
Quarter: 2011Q1

REPORT INFORMATION
  Report Type: 
  Country: None (occurrence: None)
  Receive Date: 20110130
  Receipt Date: 20101015
  Transmission Date: 20110831
  Serious: No
  Sender: FDA-Public Use
  Company Number: US-ABBOTT-10P-163-0678759-00

PATIENT
  Age: 42 Year
  Sex: Female

DRUGS (5)
  1. PRILOSEC [Concomitant]
     Indication: PROPHYLAXIS
  2. HUMIRA [Suspect]
     Indication: RHEUMATOID ARTHRITIS
     Dates: start: 20100501
  3. PRILOSEC [Concomitant]
     Indication: ABDOMINAL DISCOMFORT
  4. MOBIC [Concomitant]
     Indication: RHEUMATOID ARTHRITIS
  5. SUPPLEMENTS [Concomitant]
     Indication: PRODUCT USED FOR UNKNOWN INDICATION

REACTIONS (6)
  - INJECTION SITE PRURITUS [None]
  - FATIGUE [None]
  - INJECTION SITE REACTION [None]
  - INJECTION SITE ERYTHEMA [None]
  - INJECTION SITE PAPULE [None]
  - INJECTION SITE WARMTH [None]
